FAERS Safety Report 5603048-4 (Version None)
Quarter: 2008Q1

REPORT INFORMATION
  Report Type: 
  Country: None (occurrence: None)
  Receive Date: 20080125
  Receipt Date: 20080116
  Transmission Date: 20080703
  Serious: Yes (Hospitalization)
  Sender: FDA-Public Use
  Company Number: BW-GILEAD-2007-0014586

PATIENT
  Age: 34 Year
  Sex: Female
  Weight: 53 kg

DRUGS (8)
  1. EMTRICITABINE [Suspect]
     Indication: HIV INFECTION
     Route: 048
     Dates: start: 20061212, end: 20071108
  2. TENOFOVIR DISOPROXIL FUMARATE [Suspect]
     Indication: HIV INFECTION
     Route: 048
     Dates: start: 20061212, end: 20071108
  3. EFAVIRENZ [Suspect]
     Indication: HIV INFECTION
     Route: 048
     Dates: start: 20061212, end: 20071108
  4. ISONIAZID [Concomitant]
     Indication: PULMONARY TUBERCULOSIS
     Dates: start: 20071128
  5. RIFAMPICIN [Concomitant]
     Indication: PULMONARY TUBERCULOSIS
     Dates: start: 20071128
  6. PYRAZINAMIDE [Concomitant]
     Indication: PULMONARY TUBERCULOSIS
     Dates: start: 20071128
  7. ETHAMBUTOL HYDROCHLORIDE [Concomitant]
     Indication: PULMONARY TUBERCULOSIS
     Dates: start: 20071128
  8. PYRIDOXINE [Concomitant]
     Indication: MEDICAL DIET
     Dates: start: 20071128

REACTIONS (1)
  - HYPERBILIRUBINAEMIA [None]
